FAERS Safety Report 25299814 (Version 2)
Quarter: 2025Q2

REPORT INFORMATION
  Report Type: Report from Study
  Country: FR (occurrence: FR)
  Receive Date: 20250512
  Receipt Date: 20250625
  Transmission Date: 20250717
  Serious: Yes (Congenital Anomaly)
  Sender: AUROBINDO
  Company Number: FR-ABBVIE-6166113

PATIENT

DRUGS (4)
  1. EMTRICITABINE\TENOFOVIR [Suspect]
     Active Substance: EMTRICITABINE\TENOFOVIR
     Indication: Maternal exposure timing unspecified
     Route: 064
  2. EMTRICITABINE\TENOFOVIR [Suspect]
     Active Substance: EMTRICITABINE\TENOFOVIR
     Indication: HIV infection
  3. LOPINAVIR\RITONAVIR [Suspect]
     Active Substance: LOPINAVIR\RITONAVIR
     Indication: Maternal exposure timing unspecified
     Route: 064
  4. LOPINAVIR\RITONAVIR [Suspect]
     Active Substance: LOPINAVIR\RITONAVIR
     Indication: HIV infection

REACTIONS (2)
  - Neurodevelopmental disorder [Unknown]
  - Foetal exposure during pregnancy [Recovered/Resolved]
